FAERS Safety Report 10097737 (Version 1)
Quarter: 2014Q2

REPORT INFORMATION
  Report Type: Spontaneous
  Country: US (occurrence: US)
  Receive Date: 20140423
  Receipt Date: 20140423
  Transmission Date: 20141212
  Serious: No
  Sender: FDA-Public Use
  Company Number: US-BIOGENIDEC-2014BI034841

PATIENT
  Age: 67 Year
  Sex: Female

DRUGS (17)
  1. TECFIDERA [Suspect]
     Indication: MULTIPLE SCLEROSIS
     Route: 048
     Dates: start: 20131001
  2. ASPIRIN [Concomitant]
  3. CALCIUM 600+D [Concomitant]
  4. COLESTIPOL HCL [Concomitant]
  5. FISH OIL [Concomitant]
  6. FLAX SEED OIL [Concomitant]
  7. FLUTICASONE PROPIONATE [Concomitant]
  8. FUROSEMIDE [Concomitant]
  9. KLOR-CON M20 [Concomitant]
  10. LATANOPROST [Concomitant]
  11. LEVOTHYROXINE SODIUM [Concomitant]
  12. MELATONIN [Concomitant]
  13. METHOCARBAMOL [Concomitant]
  14. TIMOLOL MALEATE [Concomitant]
  15. TRIPLE FLEX [Concomitant]
  16. TYLENOL [Concomitant]
  17. VITAMIN C [Concomitant]

REACTIONS (1)
  - Muscle spasms [Unknown]
